FAERS Safety Report 9972839 (Version 1)
Quarter: 2014Q1

REPORT INFORMATION
  Report Type: Spontaneous
  Country: FR (occurrence: FR)
  Receive Date: 20140306
  Receipt Date: 20140306
  Transmission Date: 20141002
  Serious: Yes (Hospitalization)
  Sender: FDA-Public Use
  Company Number: FR-B.I. PHARMACEUTICALS,INC./RIDGEFIELD-2014-BI-08885FF

PATIENT
  Age: 83 Year
  Sex: Male

DRUGS (3)
  1. PRADAXA [Suspect]
     Indication: PRODUCT USED FOR UNKNOWN INDICATION
     Dosage: 150 MG
     Route: 048
     Dates: start: 201207, end: 201311
  2. ARANESP [Suspect]
     Indication: ANAEMIA
     Dosage: 5.7143 MCG
     Route: 058
     Dates: start: 201307, end: 201311
  3. ARANESP [Suspect]
     Indication: ANAEMIA
     Dosage: 1.4286 MCG
     Route: 058
     Dates: start: 201305, end: 201307

REACTIONS (1)
  - Pulmonary embolism [Unknown]
